FAERS Safety Report 6646253-0 (Version None)
Quarter: 2010Q1

REPORT INFORMATION
  Report Type: 
  Country: None (occurrence: None)
  Receive Date: 20100323
  Receipt Date: 20100310
  Transmission Date: 20100710
  Serious: Yes (Other)
  Sender: FDA-Public Use
  Company Number: US-BAYER-200923105NA

PATIENT

DRUGS (4)
  1. MAGNEVIST [Suspect]
     Indication: ARTHROSCOPY
     Dosage: AS USED: 1 ML
     Route: 014
  2. LIDOCAINE [Suspect]
     Indication: X-RAY
     Route: 014
  3. OPTIRAY 350 [Suspect]
     Indication: X-RAY
     Route: 014
  4. NORMAL SALINE [Suspect]
     Indication: ARTHROSCOPY
     Dosage: AS USED: 9 ML
     Route: 014

REACTIONS (1)
  - NO ADVERSE EVENT [None]
